FAERS Safety Report 6909284-9 (Version None)
Quarter: 2010Q3

REPORT INFORMATION
  Report Type: 
  Country: None (occurrence: None)
  Receive Date: 20100805
  Receipt Date: 20100723
  Transmission Date: 20110219
  Serious: Yes (Other)
  Sender: FDA-Public Use
  Company Number: PHHY2010US47312

PATIENT
  Sex: Male

DRUGS (2)
  1. GLEEVEC [Suspect]
     Indication: GLIOBLASTOMA MULTIFORME
     Dosage: 400 MG, BID
     Route: 048
     Dates: start: 20090724, end: 20100708
  2. HYDROXYUREA [Concomitant]
     Indication: GLIOBLASTOMA MULTIFORME
     Dosage: UNK
     Dates: start: 20090724, end: 20100708

REACTIONS (2)
  - GLIOBLASTOMA MULTIFORME [None]
  - MALIGNANT NEOPLASM PROGRESSION [None]
